FAERS Safety Report 5022449-9 (Version None)
Quarter: 2006Q2

REPORT INFORMATION
  Report Type: 
  Country: None (occurrence: None)
  Receive Date: 20060609
  Receipt Date: 20060425
  Transmission Date: 20061013
  Serious: Yes (Hospitalization)
  Sender: FDA-Public Use
  Company Number: CZ-ROCHE-445827

PATIENT
  Age: 49 Year
  Sex: Female
  Weight: 83 kg

DRUGS (8)
  1. RIBAVIRIN [Suspect]
     Route: 048
     Dates: start: 20060317, end: 20060425
  2. RIBAVIRIN [Suspect]
     Route: 048
     Dates: start: 20060522
  3. PEG-INTERFERON A-2A (RO 25-8310) [Suspect]
     Route: 058
     Dates: start: 20060317, end: 20060421
  4. PEG-INTERFERON A-2A (RO 25-8310) [Suspect]
     Route: 058
     Dates: start: 20060502
  5. NIMESIL [Concomitant]
     Dates: start: 20050615
  6. MUCOSOLVAN [Concomitant]
     Dates: start: 20060413
  7. UNSPECIFIED DRUG [Concomitant]
     Dosage: REPORTED AS 'CELASKON'
     Dates: start: 20060317
  8. PYRIDOXIN [Concomitant]
     Dates: start: 20060317

REACTIONS (3)
  - FACIAL PARESIS [None]
  - FATIGUE [None]
  - HYPOXIA [None]
